FAERS Safety Report 9889650 (Version 3)
Quarter: 2014Q2

REPORT INFORMATION
  Report Type: Spontaneous
  Country: JP (occurrence: JP)
  Receive Date: 20140211
  Receipt Date: 20140414
  Transmission Date: 20141212
  Serious: Yes (Other)
  Sender: FDA-Public Use
  Company Number: JP-PFIZER INC-2014035915

PATIENT
  Age: 62 Year
  Sex: Male

DRUGS (7)
  1. HALCION [Suspect]
     Dosage: 0.25 MG, 1X/DAY
     Route: 048
  2. HALCION [Suspect]
     Dosage: TWO TABLETS
     Route: 048
  3. CHOLECALCIFEROL [Concomitant]
     Dosage: UNK
  4. AMLODIN [Concomitant]
     Dosage: UNK
  5. KREMEZIN [Concomitant]
     Dosage: UNK
  6. KALIMATE [Concomitant]
     Dosage: UNK
  7. ERYTHROPOIETIN [Concomitant]
     Dosage: UNK

REACTIONS (1)
  - Convulsion [Recovered/Resolved]
